FAERS Safety Report 26194979 (Version 2)
Quarter: 2025Q4

REPORT INFORMATION
  Report Type: Report from Study
  Country: GB (occurrence: GB)
  Receive Date: 20251224
  Receipt Date: 20251226
  Transmission Date: 20260118
  Serious: Yes (Hospitalization)
  Sender: MDD OPERATIONS
  Company Number: GB-MDD US Operations-MDD202512-005314

PATIENT
  Age: 49 Year
  Sex: Male

DRUGS (1)
  1. APOMORPHINE [Suspect]
     Active Substance: APOMORPHINE
     Indication: Parkinson^s disease
     Dosage: 0.5MG AT 5MG/ML.
     Route: 058
     Dates: start: 20251212

REACTIONS (6)
  - Arrhythmia [Recovered/Resolved]
  - Malaise [Recovered/Resolved]
  - Hyperhidrosis [Recovered/Resolved]
  - Hypotension [Recovered/Resolved]
  - Dizziness [Recovered/Resolved]
  - Vomiting [Recovered/Resolved]

NARRATIVE: CASE EVENT DATE: 20251212
